FAERS Safety Report 15196305 (Version 1)
Quarter: 2018Q3

REPORT INFORMATION
  Report Type: Spontaneous
  Country: DE (occurrence: DE)
  Receive Date: 20180725
  Receipt Date: 20180725
  Transmission Date: 20181010
  Serious: Yes (Hospitalization)
  Sender: FDA-Public Use
  Company Number: DE-PFIZER INC-2018294379

PATIENT
  Age: 52 Year
  Sex: Female
  Weight: 54 kg

DRUGS (8)
  1. VENLAFAXINE HCL [Suspect]
     Active Substance: VENLAFAXINE HYDROCHLORIDE
     Dosage: 37.5 MG, 1X/DAY
     Dates: start: 20180411, end: 20180515
  2. BUDESONID [Concomitant]
     Active Substance: BUDESONIDE
     Dosage: UNK, AS NEEDED
  3. OMEPRAZOL [Concomitant]
     Active Substance: OMEPRAZOLE
     Dosage: 40 MG, 1X/DAY (1?0?0)
  4. JODID 200 [Concomitant]
     Dosage: 200 UG, 1X/DAY (1?0?0)
  5. CHLORPROTHIXEN [Concomitant]
     Active Substance: CHLORPROTHIXENE HYDROCHLORIDE
     Dosage: UNK
  6. PROGESTAN [Concomitant]
     Active Substance: PROGESTERONE
     Dosage: UNK, 1X/DAY (0?0?1)
  7. VENLAFAXINE HCL [Suspect]
     Active Substance: VENLAFAXINE HYDROCHLORIDE
     Dosage: 37.5 MG, 1X/DAY
     Dates: start: 20180527, end: 20180528
  8. SYNTARIS NS [Concomitant]
     Dosage: UNK, AS NEEDED

REACTIONS (19)
  - Paraesthesia [Recovered/Resolved]
  - Ureteral disorder [Recovered/Resolved]
  - Facial paralysis [Recovered/Resolved]
  - Anxiety [Recovered/Resolved]
  - Asthenia [Recovered/Resolved]
  - Areflexia [Recovered/Resolved]
  - Myalgia [Recovered/Resolved]
  - Weight decreased [Recovered/Resolved]
  - Sleep disorder [Recovered/Resolved]
  - Gait disturbance [Recovered/Resolved]
  - Muscular weakness [Recovered/Resolved]
  - Hypoaesthesia oral [Recovered/Resolved]
  - Muscle spasticity [Recovered/Resolved]
  - Vulvovaginal discomfort [Unknown]
  - Limb discomfort [Recovered/Resolved]
  - Deafness unilateral [Recovered/Resolved]
  - Hypoaesthesia [Recovered/Resolved]
  - Speech disorder [Recovered/Resolved]
  - Somatic symptom disorder [Recovered/Resolved]

NARRATIVE: CASE EVENT DATE: 20180411
